FAERS Safety Report 5528795-4 (Version None)
Quarter: 2007Q4

REPORT INFORMATION
  Report Type: 
  Country: None (occurrence: None)
  Receive Date: 20071119
  Receipt Date: 20070814
  Transmission Date: 20080405
  Serious: No
  Sender: FDA-Public Use
  Company Number: TPA2007A01704

PATIENT
  Sex: Female

DRUGS (2)
  1. ROZEREM [Suspect]
     Dosage: PER ORAL
     Route: 048
     Dates: start: 20070720
  2. UNKNOWN BLOOD PRESSURE MEDICATION(ANTIHYPERTENSIVES) [Concomitant]

REACTIONS (1)
  - DRUG INEFFECTIVE [None]
